FAERS Safety Report 4314956-9 (Version None)
Quarter: 2004Q1

REPORT INFORMATION
  Report Type: 
  Country: None (occurrence: None)
  Receive Date: 20040309
  Receipt Date: 20040227
  Transmission Date: 20041129
  Serious: Yes (Disabling, Other)
  Sender: FDA-Public Use
  Company Number: 2004-02-0651

PATIENT
  Age: 65 Year
  Sex: Female
  Weight: 72 kg

DRUGS (1)
  1. PEG-INTRON [Suspect]
     Indication: MALIGNANT MELANOMA
     Dosage: 219 MCG SUBCUTANEOUS
     Route: 058
     Dates: start: 20021128, end: 20040115

REACTIONS (4)
  - ABASIA [None]
  - DRUG INEFFECTIVE [None]
  - HYPERKERATOSIS PALMARIS AND PLANTARIS [None]
  - WALKING AID USER [None]
